FAERS Safety Report 9338849 (Version 2)
Quarter: 2013Q3

REPORT INFORMATION
  Report Type: Spontaneous
  Country: BR (occurrence: BR)
  Receive Date: 20130610
  Receipt Date: 20130827
  Transmission Date: 20140515
  Serious: Yes (Other)
  Sender: FDA-Public Use
  Company Number: BR-ELI_LILLY_AND_COMPANY-BR201305009073

PATIENT
  Age: 40 Year
  Sex: Female
  Weight: 69 kg

DRUGS (2)
  1. CYMBALTA [Suspect]
     Indication: FIBROSIS
     Dosage: 60 MG, QD
     Route: 048
     Dates: start: 20130503, end: 20130504
  2. CYMBALTA [Suspect]
     Dosage: UNK UNK, OTHER
     Route: 048
     Dates: start: 20130511, end: 20130522

REACTIONS (12)
  - Delirium [Recovered/Resolved]
  - Arrhythmia [Recovered/Resolved]
  - Hallucination [Unknown]
  - Retching [Recovered/Resolved]
  - Off label use [Unknown]
  - Wrong technique in drug usage process [Unknown]
  - Headache [Recovered/Resolved]
  - Malaise [Recovered/Resolved]
  - Asthenia [Recovered/Resolved]
  - Dry mouth [Recovered/Resolved]
  - Vision blurred [Recovered/Resolved]
  - Feeling hot [Recovered/Resolved]
